FAERS Safety Report 7476880-2 (Version None)
Quarter: 2011Q2

REPORT INFORMATION
  Report Type: 
  Country: None (occurrence: None)
  Receive Date: 20110512
  Receipt Date: 20091029
  Transmission Date: 20111010
  Serious: Yes (Death, Hospitalization, Other)
  Sender: FDA-Public Use
  Company Number: US-BAYER-200937590NA

PATIENT
  Age: 67 Year
  Sex: Male
  Weight: 108.84 kg

DRUGS (20)
  1. ACETYLSALICYLIC ACID SRT [Concomitant]
     Dosage: 325 MG, QD
     Route: 048
  2. LASIX [Concomitant]
     Dosage: 40MCG
     Route: 042
     Dates: start: 20070130
  3. RED BLOOD CELLS, CONCENTRATED [Concomitant]
  4. INSULIN [INSULIN] [Concomitant]
     Dosage: 25 UNITS
     Route: 042
     Dates: start: 20070130
  5. HEPARIN [Concomitant]
     Dosage: 45550 UNITS
     Route: 042
     Dates: start: 20070130
  6. ATACAND [CANDESARTAN CILEXETIL,HYDROCHLOROTHIAZIDE] [Concomitant]
     Dosage: 32 MG, QD
     Route: 048
  7. MANNITOL [Concomitant]
     Dosage: 12.5GRAMS
     Route: 042
     Dates: start: 20070130
  8. INSULIN [INSULIN] [Concomitant]
     Dosage: 10 UNITS
     Route: 042
     Dates: start: 20070130
  9. NORVASC [Concomitant]
     Dosage: 5 MG EVERY OTHER DAY
     Route: 048
  10. NIASPAN [Concomitant]
     Dosage: 500MG 2 BEFORE BED
     Route: 048
  11. PROTAMINE SULFATE [Concomitant]
     Dosage: 500MG
     Route: 042
     Dates: start: 20070130
  12. TRASYLOL [Suspect]
     Indication: CORONARY ARTERY BYPASS
     Dosage: TEST DOSE 1ML LOADING DOSE: 200ML FOLLOWED BY 50ML/HR
     Dates: start: 20070130, end: 20070130
  13. NITROSTAT [Concomitant]
     Dosage: 0.4 MG, PRN
  14. HYDROCHLOROTHIAZIDE [Concomitant]
     Dosage: 12.5 MG, QD
     Route: 048
  15. LASIX [Concomitant]
     Dosage: 40 MG, QD
     Route: 048
  16. TENORMIN [Concomitant]
     Dosage: 100 MG, QD
     Route: 048
  17. ZETIA [Concomitant]
     Dosage: 10 MG, HS
     Route: 048
  18. ZOCOR [Concomitant]
     Dosage: 80 MG, QD
     Route: 048
  19. HEPARIN [Concomitant]
     Dosage: 31000
     Route: 042
     Dates: start: 20070130
  20. DOBUTAMINE HYDROCHLORIDE [Concomitant]
     Dosage: 32
     Route: 042
     Dates: start: 20070130

REACTIONS (9)
  - UNEVALUABLE EVENT [None]
  - PAIN [None]
  - DEATH [None]
  - INJURY [None]
  - FEAR [None]
  - RENAL FAILURE [None]
  - ANXIETY [None]
  - DEPRESSION [None]
  - ANHEDONIA [None]
